FAERS Safety Report 18389813 (Version 1)
Quarter: 2020Q4

REPORT INFORMATION
  Report Type: Spontaneous
  Country: CN (occurrence: CN)
  Receive Date: 20201016
  Receipt Date: 20201016
  Transmission Date: 20210114
  Serious: Yes (Hospitalization, Other)
  Sender: FDA-Public Use
  Company Number: CN-B.I. PHARMACEUTICALS,INC./RIDGEFIELD-2020-BI-053734

PATIENT
  Age: 83 Year
  Sex: Female

DRUGS (6)
  1. SIFROL [Suspect]
     Active Substance: PRAMIPEXOLE
  2. SIFROL [Suspect]
     Active Substance: PRAMIPEXOLE
     Indication: PARKINSON^S DISEASE
  3. BENSERAZIDE;LEVODOPA [Concomitant]
     Active Substance: BENSERAZIDE\LEVODOPA
  4. BENSERAZIDE;LEVODOPA [Concomitant]
     Active Substance: BENSERAZIDE\LEVODOPA
     Indication: PARKINSON^S DISEASE
  5. BENSERAZIDE;LEVODOPA [Concomitant]
     Active Substance: BENSERAZIDE\LEVODOPA
  6. BENSERAZIDE;LEVODOPA [Concomitant]
     Active Substance: BENSERAZIDE\LEVODOPA

REACTIONS (10)
  - Tremor [Unknown]
  - COVID-19 pneumonia [Recovered/Resolved]
  - Psychomotor hyperactivity [Recovered/Resolved]
  - Acute respiratory failure [Recovered/Resolved]
  - Speech disorder [Recovering/Resolving]
  - Encephalopathy [Recovered/Resolved]
  - Agitation [Unknown]
  - Muscle rigidity [Unknown]
  - Delirium [Unknown]
  - Urinary tract infection [Unknown]

NARRATIVE: CASE EVENT DATE: 20200221
